FAERS Safety Report 18625551 (Version 1)
Quarter: 2020Q4

REPORT INFORMATION
  Report Type: Spontaneous
  Country: US (occurrence: US)
  Receive Date: 20201216
  Receipt Date: 20201216
  Transmission Date: 20210114
  Serious: Yes (Hospitalization)
  Sender: FDA-Public Use
  Company Number: US-CHIESI USA, INC.-US-2020CHI000690

PATIENT

DRUGS (2)
  1. PULMOZYME [Concomitant]
     Active Substance: DORNASE ALFA
     Indication: PRODUCT USED FOR UNKNOWN INDICATION
     Dosage: UNK
     Route: 065
  2. BETHKIS [Suspect]
     Active Substance: TOBRAMYCIN
     Indication: CYSTIC FIBROSIS
     Dosage: 1 DF, Q12H
     Route: 055

REACTIONS (5)
  - Infective pulmonary exacerbation of cystic fibrosis [Recovering/Resolving]
  - Product use issue [Recovering/Resolving]
  - Product dose omission issue [Recovering/Resolving]
  - Nasopharyngitis [Recovering/Resolving]
  - Product availability issue [Not Recovered/Not Resolved]
